FAERS Safety Report 8874130 (Version 2)
Quarter: 2014Q2

REPORT INFORMATION
  Report Type: Spontaneous
  Country: US (occurrence: US)
  Receive Date: 20121031
  Receipt Date: 20131018
  Transmission Date: 20141212
  Serious: Yes (Other)
  Sender: FDA-Public Use
  Company Number: US-PFIZER INC-2012270161

PATIENT
  Age: 53 Year
  Sex: Female

DRUGS (5)
  1. ATENOLOL [Suspect]
     Dosage: UNK
     Route: 048
  2. SEROQUEL [Suspect]
     Dosage: 300 MG, DAILY
     Route: 048
  3. MAXIDEX [Suspect]
     Dosage: UNK
     Route: 065
  4. LAMICTAL [Concomitant]
     Dosage: UNK
     Route: 065
  5. CARBUTEROL [Concomitant]
     Dosage: UNK
     Route: 065

REACTIONS (4)
  - Hypotension [Unknown]
  - Fall [Unknown]
  - Thermal burn [Unknown]
  - Loss of consciousness [Unknown]
